FAERS Safety Report 9352183 (Version 2)
Quarter: 2013Q2

REPORT INFORMATION
  Report Type: Spontaneous
  Country: VE (occurrence: VE)
  Receive Date: 20130617
  Receipt Date: 20130620
  Transmission Date: 20140414
  Serious: Yes (Other)
  Sender: FDA-Public Use
  Company Number: VE-PFIZER INC-2013179391

PATIENT
  Age: 67 Year
  Sex: Male

DRUGS (1)
  1. CADUET [Suspect]
     Indication: HYPERTENSION
     Dosage: [AMLODIPINE BESILATE 5 MG]/[ATORVASTATIN CALCIUM 20MG], UNK
     Route: 048
     Dates: start: 2009

REACTIONS (1)
  - Groin abscess [Recovered/Resolved]
